FAERS Safety Report 5141166-8 (Version None)
Quarter: 2006Q4

REPORT INFORMATION
  Report Type: 
  Country: None (occurrence: None)
  Receive Date: 20061101
  Receipt Date: 20061013
  Transmission Date: 20070319
  Serious: Yes (Other)
  Sender: FDA-Public Use
  Company Number: US-AMGEN-STX196902

PATIENT
  Sex: Male
  Weight: 90.8 kg

DRUGS (1)
  1. ENBREL [Suspect]
     Indication: PSORIASIS
     Route: 058
     Dates: start: 20050117, end: 20060801

REACTIONS (5)
  - EPISCLERITIS [None]
  - EYE INFLAMMATION [None]
  - GLAUCOMA [None]
  - MYOPIA [None]
  - OPTIC NEURITIS [None]
